FAERS Safety Report 5350011-7 (Version None)
Quarter: 2007Q2

REPORT INFORMATION
  Report Type: 
  Country: None (occurrence: None)
  Receive Date: 20070510
  Receipt Date: 20070213
  Transmission Date: 20071010
  Serious: Yes (Hospitalization)
  Sender: FDA-Public Use
  Company Number: 2007S1000171

PATIENT
  Age: 30 Year
  Sex: Male

DRUGS (3)
  1. CUBICIN [Suspect]
     Indication: ENDOCARDITIS STAPHYLOCOCCAL
     Dosage: 400 MG; Q24H; IV
     Route: 042
     Dates: start: 20070127, end: 20070208
  2. NAFCILLIN SODIUM [Concomitant]
  3. IBUPROFEN [Concomitant]

REACTIONS (2)
  - PYREXIA [None]
  - RHABDOMYOLYSIS [None]
